FAERS Safety Report 6265433-X (Version None)
Quarter: 2009Q3

REPORT INFORMATION
  Report Type: 
  Country: None (occurrence: None)
  Receive Date: 20090713
  Receipt Date: 20090629
  Transmission Date: 20100115
  Serious: Yes (Hospitalization)
  Sender: FDA-Public Use
  Company Number: FR-BAYER-200924815GPV

PATIENT
  Age: 31 Year
  Sex: Female

DRUGS (4)
  1. ADALAT [Suspect]
     Indication: THREATENED LABOUR
     Dosage: 5 COURSES NOS
     Route: 048
     Dates: start: 20090301, end: 20090401
  2. TRACTOCILE [Suspect]
     Indication: THREATENED LABOUR
     Dosage: 6 COURSES
     Route: 042
     Dates: start: 20090301, end: 20090401
  3. ALBUTEROL [Suspect]
     Indication: THREATENED LABOUR
     Dosage: 8 COURSES (NOS)
     Route: 042
     Dates: start: 20090301, end: 20090401
  4. CELESTENE [Concomitant]
     Dates: start: 20090403, end: 20090404

REACTIONS (2)
  - RENAL COLIC [None]
  - UTERINE HYPERTONUS [None]
